FAERS Safety Report 6888368-8 (Version None)
Quarter: 2010Q3

REPORT INFORMATION
  Report Type: 
  Country: None (occurrence: None)
  Receive Date: 20100730
  Receipt Date: 20100720
  Transmission Date: 20110219
  Serious: Yes (Other)
  Sender: FDA-Public Use
  Company Number: CA-PFIZER INC-2010084626

PATIENT
  Age: 64 Year
  Sex: Male
  Weight: 108.84 kg

DRUGS (9)
  1. CHAMPIX [Suspect]
     Indication: SMOKING CESSATION THERAPY
     Dosage: 0.5 MG, 1X/DAY
     Dates: start: 20100602, end: 20100606
  2. CHAMPIX [Suspect]
     Dosage: 1 MG, 1X/DAY
     Dates: start: 20100607, end: 20100609
  3. ADALAT CC [Concomitant]
     Indication: BLOOD PRESSURE
     Dosage: 60 MG, 1X/DAY
     Dates: start: 20060101
  4. PRAVASTATIN [Concomitant]
     Indication: BLOOD CHOLESTEROL
     Dosage: 40 MG, 2X/DAY
     Dates: start: 20060101
  5. ZOPICLONE [Concomitant]
     Indication: ANXIETY
     Dosage: 10 MG, 1X/DAY, BEDTIME
  6. ZOPICLONE [Concomitant]
     Indication: SLEEP DISORDER
  7. CITALOPRAM [Concomitant]
     Indication: DEPRESSION
     Dosage: 60 MG, 1X/DAY
     Dates: end: 20100401
  8. CITALOPRAM [Concomitant]
     Indication: NERVOUSNESS
  9. ARTHROTEC [Concomitant]
     Indication: PAIN
     Dosage: 25 MG, 2X/DAY

REACTIONS (5)
  - BLISTER [None]
  - OEDEMA PERIPHERAL [None]
  - PARAESTHESIA [None]
  - RASH [None]
  - SKIN EXFOLIATION [None]
